FAERS Safety Report 7357734-9 (Version None)
Quarter: 2011Q1

REPORT INFORMATION
  Report Type: 
  Country: None (occurrence: None)
  Receive Date: 20110317
  Receipt Date: 20110308
  Transmission Date: 20110831
  Serious: Yes (Death, Other)
  Sender: FDA-Public Use
  Company Number: US-JNJFOC-981007-107013866

PATIENT
  Age: 55 Year
  Sex: Female

DRUGS (4)
  1. BARBITURATE [Suspect]
     Indication: PRODUCT USED FOR UNKNOWN INDICATION
     Route: 065
  2. BENZODIAZEPINES NOS [Suspect]
     Indication: PRODUCT USED FOR UNKNOWN INDICATION
     Route: 065
  3. TRAMADOL HCL [Suspect]
     Indication: PRODUCT USED FOR UNKNOWN INDICATION
     Route: 048
  4. OPIATES [Suspect]
     Indication: PRODUCT USED FOR UNKNOWN INDICATION
     Route: 065

REACTIONS (10)
  - CONVULSION [None]
  - BRAIN OEDEMA [None]
  - COMA [None]
  - CARDIAC ARREST [None]
  - DRUG LEVEL BELOW THERAPEUTIC [None]
  - ACIDOSIS [None]
  - HYPOTENSION [None]
  - COMPLETED SUICIDE [None]
  - OVERDOSE [None]
  - HYPOXIA [None]
